FAERS Safety Report 5025127-5 (Version None)
Quarter: 2006Q2

REPORT INFORMATION
  Report Type: 
  Country: None (occurrence: None)
  Receive Date: 20060613
  Receipt Date: 19990726
  Transmission Date: 20061013
  Serious: Yes (Death, Hospitalization)
  Sender: FDA-Public Use
  Company Number: US-AMGEN-99070738

PATIENT
  Sex: Male
  Weight: 92.99 kg

DRUGS (3)
  1. ENBREL [Suspect]
     Indication: PSORIATIC ARTHROPATHY
     Route: 058
     Dates: start: 19990317, end: 19990601
  2. ENBREL [Suspect]
  3. CELECOXIB [Concomitant]

REACTIONS (5)
  - COUGH [None]
  - DEATH [None]
  - NEOPLASM [None]
  - RHINORRHOEA [None]
  - WHEEZING [None]
